FAERS Safety Report 5553818-6 (Version None)
Quarter: 2007Q4

REPORT INFORMATION
  Report Type: 
  Country: None (occurrence: None)
  Receive Date: 20071213
  Receipt Date: 20071206
  Transmission Date: 20080405
  Serious: Yes (Hospitalization)
  Sender: FDA-Public Use
  Company Number: GB-ROCHE-535664

PATIENT
  Age: 55 Year
  Sex: Male

DRUGS (7)
  1. ORLISTAT [Suspect]
     Indication: OBESITY
     Route: 048
     Dates: start: 20071102
  2. MIRTAZAPINE [Concomitant]
     Indication: DEPRESSION
     Route: 048
  3. ASPIRIN [Concomitant]
     Indication: ANGINA PECTORIS
     Route: 048
  4. ENAPRIL [Concomitant]
     Dosage: INDICATION REPORTED: CARDIAC
     Route: 048
  5. ISOSORBIDE DINITRATE [Concomitant]
     Dosage: INDICATION REPORTED: CARDIAC
     Route: 048
  6. 1 CONCOMITANT DRUG [Concomitant]
     Dosage: DRUG REPORTED: ATRORVASTIN
     Route: 048
  7. ATENOLOL [Concomitant]
     Dosage: INDICATION REPORTED: CARDIAC
     Route: 048

REACTIONS (1)
  - CHEST PAIN [None]
